FAERS Safety Report 17098960 (Version 1)
Quarter: 2019Q4

REPORT INFORMATION
  Report Type: Spontaneous
  Country: US (occurrence: US)
  Receive Date: 20191130
  Receipt Date: 20191130
  Transmission Date: 20200122
  Serious: Yes (Other)
  Sender: FDA-Public Use
  Company Number: None

PATIENT
  Age: 53 Year
  Sex: Female

DRUGS (2)
  1. SUMATRIPTAN INJ 6MG/0.5ML [Concomitant]
  2. SUMATRIPTAN INJECTION USP AUTO-INJECTOR SYSTEM 6MG/ 0.5 ML [Suspect]
     Active Substance: SUMATRIPTAN SUCCINATE
     Indication: MIGRAINE
     Route: 058

REACTIONS (3)
  - Device malfunction [None]
  - Therapy non-responder [None]
  - Drug dose omission by device [None]
